FAERS Safety Report 5245914-8 (Version None)
Quarter: 2007Q1

REPORT INFORMATION
  Report Type: 
  Country: None (occurrence: None)
  Receive Date: 20070216
  Receipt Date: 20070202
  Transmission Date: 20070707
  Serious: Yes (Hospitalization)
  Sender: FDA-Public Use
  Company Number: 310001L07ITA

PATIENT
  Age: 38 Year
  Sex: Female

DRUGS (2)
  1. GONAL-F [Suspect]
     Dosage: 200 IU, 1 IN 1 DAYS, SUBCUTANEOUS
     Route: 058
     Dates: start: 20050701, end: 20050711
  2. LEUPROLIDE ACETATE [Suspect]
     Dosage: 0.2 MG, 1 IN 1 SEC, SUBCUTANEOUS
     Route: 058
     Dates: start: 20050611, end: 20050711

REACTIONS (1)
  - ACUTE MYOCARDIAL INFARCTION [None]
